FAERS Safety Report 8736771 (Version 3)
Quarter: 2012Q4

REPORT INFORMATION
  Report Type: Report from Study
  Country: US (occurrence: US)
  Receive Date: 20120822
  Receipt Date: 20120928
  Transmission Date: 20130627
  Serious: Yes (Hospitalization)
  Sender: FDA-Public Use
  Company Number: US-PFIZER INC-2012201118

PATIENT
  Age: 49 Year
  Sex: Female
  Weight: 64.1 kg

DRUGS (3)
  1. DOXORUBICIN HCL [Suspect]
     Indication: SOFT TISSUE NEOPLASM
     Dosage: 75 mg/m2, UNK
     Route: 042
     Dates: start: 20120228
  2. DEXRAZOXANE [Suspect]
     Indication: SOFT TISSUE NEOPLASM
     Dosage: 750 mg/m2, UNK
     Route: 042
     Dates: start: 20120525
  3. FENTANYL [Concomitant]

REACTIONS (2)
  - Febrile neutropenia [Recovered/Resolved]
  - Urinary tract infection [Recovered/Resolved]
